FAERS Safety Report 10272921 (Version 1)
Quarter: 2014Q2

REPORT INFORMATION
  Report Type: Spontaneous
  Country: US (occurrence: None)
  Receive Date: 20140630
  Receipt Date: 20140630
  Transmission Date: 20141212
  Serious: Yes (Other)
  Sender: FDA-Public Use
  Company Number: 2014VER00040

PATIENT
  Age: 8 Year
  Sex: Female

DRUGS (2)
  1. ETHOSUXIMIDE [Suspect]
     Indication: PETIT MAL EPILEPSY
     Dosage: 0.5 TSP, ORAL
     Route: 048
     Dates: start: 20140423, end: 20140528
  2. VITAMINS [Concomitant]

REACTIONS (3)
  - Drug level below therapeutic [None]
  - Petit mal epilepsy [None]
  - Drug ineffective [None]
